FAERS Safety Report 5737973-0 (Version None)
Quarter: 2008Q2

REPORT INFORMATION
  Report Type: 
  Country: None (occurrence: None)
  Receive Date: 20080508
  Receipt Date: 20080318
  Transmission Date: 20081010
  Serious: Yes (Other)
  Sender: FDA-Public Use
  Company Number: ZYD-AE-08-043

PATIENT
  Age: 53 Year
  Sex: Female

DRUGS (2)
  1. RIBAVIRIN [Suspect]
     Indication: HEPATITIS C VIRUS
     Dosage: 1000MG QD PO
     Route: 048
     Dates: start: 20071126
  2. PEG-INTERFERON A-2A [Suspect]
     Indication: HEPATITIS C VIRUS
     Dosage: 180 MCG QD PO
     Route: 048
     Dates: start: 20071126

REACTIONS (4)
  - ASTHMA [None]
  - CHRONIC OBSTRUCTIVE PULMONARY DISEASE [None]
  - DECREASED APPETITE [None]
  - WHITE BLOOD CELL COUNT ABNORMAL [None]
